FAERS Safety Report 14593728 (Version 1)
Quarter: 2018Q1

REPORT INFORMATION
  Report Type: Spontaneous
  Country: DE (occurrence: DE)
  Receive Date: 20180302
  Receipt Date: 20180302
  Transmission Date: 20180509
  Serious: Yes (Death)
  Sender: FDA-Public Use
  Company Number: DE-CHIESI USA INC.-DE-2018CHI000049

PATIENT
  Sex: Male
  Weight: .86 kg

DRUGS (3)
  1. BUDESONID [Concomitant]
     Active Substance: BUDESONIDE
     Indication: NEONATAL RESPIRATORY DISTRESS SYNDROME
     Dosage: 0.1 MG, QD
  2. ILOPROST. [Concomitant]
     Active Substance: ILOPROST
     Indication: NEONATAL RESPIRATORY DISTRESS SYNDROME
     Dosage: 3 ?G, QD
  3. CUROSURF [Suspect]
     Active Substance: PORACTANT ALFA
     Indication: NEONATAL RESPIRATORY DISTRESS SYNDROME
     Dosage: 480 MG, TOTAL
     Route: 007

REACTIONS (1)
  - Drug ineffective [Fatal]
